FAERS Safety Report 7078309-5 (Version None)
Quarter: 2010Q4

REPORT INFORMATION
  Report Type: 
  Country: None (occurrence: None)
  Receive Date: 20101102
  Receipt Date: 20101020
  Transmission Date: 20110411
  Serious: Yes (Hospitalization)
  Sender: FDA-Public Use
  Company Number: US-ELI_LILLY_AND_COMPANY-US201010005590

PATIENT
  Sex: Female

DRUGS (9)
  1. FORTEO [Suspect]
     Indication: OSTEOPOROSIS
     Dosage: 20 UG, DAILY (1/D)
     Dates: start: 20100813
  2. CYMBALTA [Concomitant]
     Dosage: 60 MG, DAILY (1/D)
  3. RESTASIS [Concomitant]
     Dosage: UNK, 2/D
  4. ZOCOR [Concomitant]
     Dosage: 20 MG, 2/D
  5. VITAMIN D [Concomitant]
     Dosage: UNK, 2/D
  6. PERCOCET [Concomitant]
     Dosage: 325 MG, AS NEEDED
  7. OXYCODONE [Concomitant]
     Dosage: 10 MG, 2/D
  8. DICLOFEN [Concomitant]
     Indication: ANTIINFLAMMATORY THERAPY
  9. COUMADIN [Concomitant]
     Indication: ANTICOAGULANT THERAPY

REACTIONS (3)
  - DEVICE ISSUE [None]
  - GAIT DISTURBANCE [None]
  - IMPAIRED HEALING [None]
